FAERS Safety Report 4730089-1 (Version None)
Quarter: 2005Q3

REPORT INFORMATION
  Report Type: 
  Country: None (occurrence: None)
  Receive Date: 20050801
  Receipt Date: 20050617
  Transmission Date: 20060218
  Serious: Yes (Other)
  Sender: FDA-Public Use
  Company Number: GBWYE758620JUN05

PATIENT
  Sex: Female

DRUGS (4)
  1. ENBREL [Suspect]
     Indication: RHEUMATOID ARTHRITIS
     Dosage: NORMAL DOSE
     Route: 058
     Dates: start: 20041209, end: 20050627
  2. METHOTREXATE [Concomitant]
     Dates: start: 20000801
  3. FOLIC ACID [Concomitant]
     Dates: start: 20000801
  4. DICLOFENAC SODIUM [Concomitant]

REACTIONS (8)
  - BACK PAIN [None]
  - CONDITION AGGRAVATED [None]
  - FATIGUE [None]
  - INJECTION SITE ATROPHY [None]
  - INJECTION SITE REACTION [None]
  - LIPODYSTROPHY ACQUIRED [None]
  - NAUSEA [None]
  - PARAESTHESIA [None]
